FAERS Safety Report 21439105 (Version 1)
Quarter: 2022Q4

REPORT INFORMATION
  Report Type: Report from Study
  Country: CA (occurrence: CA)
  Receive Date: 20221011
  Receipt Date: 20221011
  Transmission Date: 20230112
  Serious: Yes (Other)
  Sender: FDA-Public Use
  Company Number: CA-NOVARTISPH-NVSC2022CA209168

PATIENT
  Sex: Female

DRUGS (1)
  1. CAPMATINIB [Suspect]
     Active Substance: CAPMATINIB
     Indication: Neoplasm malignant
     Dosage: 200 MG
     Route: 065

REACTIONS (15)
  - Haemorrhage [Unknown]
  - Malignant neoplasm progression [Unknown]
  - Gait disturbance [Unknown]
  - Tremor [Unknown]
  - Abdominal distension [Unknown]
  - Face oedema [Unknown]
  - Quality of life decreased [Unknown]
  - Irritability [Unknown]
  - Confusional state [Unknown]
  - Asthenia [Unknown]
  - Stomatitis [Unknown]
  - Nervous system disorder [Unknown]
  - Nodule [Unknown]
  - Weight increased [Unknown]
  - Decreased appetite [Unknown]

NARRATIVE: CASE EVENT DATE: 20220701
